FAERS Safety Report 8537624-6 (Version None)
Quarter: 2012Q3

REPORT INFORMATION
  Report Type: 
  Country: None (occurrence: None)
  Receive Date: 20120725
  Receipt Date: 20120716
  Transmission Date: 20120928
  Serious: Yes (Hospitalization)
  Sender: FDA-Public Use
  Company Number: US-ASTRAZENECA-2011SE43123

PATIENT
  Age: 90 Year
  Sex: Female

DRUGS (1)
  1. SYMBICORT [Suspect]
     Dosage: 80/4.5 MG, UNKNOWN
     Route: 055

REACTIONS (3)
  - ASTHMA [None]
  - DEMENTIA [None]
  - HIP FRACTURE [None]
